FAERS Safety Report 10754191 (Version 1)
Quarter: 2015Q1

REPORT INFORMATION
  Report Type: Spontaneous
  Country: US (occurrence: US)
  Receive Date: 20150202
  Receipt Date: 20150202
  Transmission Date: 20150721
  Serious: Yes (Hospitalization, Other)
  Sender: FDA-Public Use
  Company Number: US-UCBSA-2015002165

PATIENT
  Age: 2 Year
  Sex: Male

DRUGS (1)
  1. KEPPRA [Suspect]
     Active Substance: LEVETIRACETAM
     Indication: SEIZURE
     Dosage: UNK

REACTIONS (5)
  - Heart rate decreased [Unknown]
  - Oxygen saturation decreased [Unknown]
  - Seizure [Unknown]
  - Respiratory syncytial virus test positive [Unknown]
  - Respiratory arrest [Unknown]
